FAERS Safety Report 7699334-7 (Version None)
Quarter: 2011Q3

REPORT INFORMATION
  Report Type: 
  Country: None (occurrence: None)
  Receive Date: 20110819
  Receipt Date: 20110815
  Transmission Date: 20111222
  Serious: Yes (Life-Threatening, Hospitalization, Other)
  Sender: FDA-Public Use
  Company Number: US-ASTRAZENECA-2011SE48550

PATIENT
  Age: 31 Year
  Sex: Male
  Weight: 95.3 kg

DRUGS (4)
  1. PLAVIX [Concomitant]
     Indication: PLATELET AGGREGATION INHIBITION
  2. SEROQUEL [Suspect]
     Dosage: ONCE A DAY
     Route: 048
     Dates: start: 20100101
  3. METOPROLOL SUCCINATE [Concomitant]
  4. ASPIRIN [Concomitant]
     Route: 048

REACTIONS (8)
  - WEIGHT INCREASED [None]
  - SUICIDE ATTEMPT [None]
  - MYOCARDIAL INFARCTION [None]
  - MENTAL IMPAIRMENT [None]
  - PARANOIA [None]
  - INCREASED APPETITE [None]
  - DEPRESSION [None]
  - DECREASED INTEREST [None]
